FAERS Safety Report 4876941-8 (Version None)
Quarter: 2006Q1

REPORT INFORMATION
  Report Type: 
  Country: None (occurrence: None)
  Receive Date: 20060110
  Receipt Date: 20051216
  Transmission Date: 20060701
  Serious: Yes (Other)
  Sender: FDA-Public Use
  Company Number: CH-ROCHE-429085

PATIENT
  Age: 59 Year
  Sex: Female
  Weight: 101 kg

DRUGS (6)
  1. BONIVA [Suspect]
     Indication: DRUG USE FOR UNKNOWN INDICATION
     Route: 048
     Dates: start: 20051203, end: 20051203
  2. ESTRADOT [Concomitant]
     Route: 062
  3. ZOCOR [Concomitant]
     Route: 048
  4. EUTHYROX [Concomitant]
     Route: 048
  5. ASPIRIN [Concomitant]
     Route: 048
  6. TENORETIC-MITE [Concomitant]
     Route: 048

REACTIONS (4)
  - DIARRHOEA [None]
  - DYSPNOEA [None]
  - OEDEMA MUCOSAL [None]
  - PANIC REACTION [None]
